FAERS Safety Report 5505069-9 (Version None)
Quarter: 2007Q4

REPORT INFORMATION
  Report Type: 
  Country: None (occurrence: None)
  Receive Date: 20071031
  Receipt Date: 20071031
  Transmission Date: 20080405
  Serious: Yes (Other)
  Sender: FDA-Public Use
  Company Number: None

PATIENT
  Age: 65 Year
  Sex: Male
  Weight: 96.6 kg

DRUGS (1)
  1. AMIODARONE HCL [Suspect]
     Indication: VENTRICULAR TACHYCARDIA
     Dosage: 150MG  IV DRIP  (DURATION: 2-3 MINUTES OF INFUSION)
     Route: 041
     Dates: start: 20071026, end: 20071026

REACTIONS (6)
  - ASTHENIA [None]
  - CONVULSION [None]
  - GRIP STRENGTH DECREASED [None]
  - INFUSION RELATED REACTION [None]
  - LACUNAR INFARCTION [None]
  - UNRESPONSIVE TO STIMULI [None]
